FAERS Safety Report 4709175-8 (Version None)
Quarter: 2005Q3

REPORT INFORMATION
  Report Type: 
  Country: None (occurrence: None)
  Receive Date: 20050708
  Receipt Date: 20050624
  Transmission Date: 20060218
  Serious: Yes (Other)
  Sender: FDA-Public Use
  Company Number: DE-JNJFOC-20050606891

PATIENT
  Age: 50 Year
  Sex: Female

DRUGS (8)
  1. RISPERDAL CONSTA [Suspect]
     Route: 030
  2. DIPIPERON [Suspect]
     Dosage: TAKEN AT 18.00HRS
     Route: 049
  3. DIPIPERON [Suspect]
     Route: 049
  4. DIPIPERON [Suspect]
     Route: 049
  5. LAUBEEL [Suspect]
     Route: 049
  6. LAUBEEL [Suspect]
     Route: 049
  7. LAUBEEL [Suspect]
     Route: 049
  8. OLANZAPINE [Suspect]
     Route: 049

REACTIONS (1)
  - CIRCULATORY COLLAPSE [None]
